FAERS Safety Report 25095432 (Version 1)
Quarter: 2025Q1

REPORT INFORMATION
  Report Type: Spontaneous
  Country: US (occurrence: US)
  Receive Date: 20250319
  Receipt Date: 20250319
  Transmission Date: 20250409
  Serious: Yes (Other)
  Sender: MYLAN
  Company Number: US-MYLANLABS-2025M1023535

PATIENT
  Sex: Female

DRUGS (1)
  1. XANAX [Suspect]
     Active Substance: ALPRAZOLAM
     Indication: Insomnia
     Dosage: 2 MILLIGRAM, QD

REACTIONS (7)
  - Loss of consciousness [Unknown]
  - Drug dependence [Unknown]
  - Electric shock sensation [Unknown]
  - Panic attack [Unknown]
  - Pain [Unknown]
  - Memory impairment [Unknown]
  - Off label use [Unknown]
